FAERS Safety Report 24441658 (Version 1)
Quarter: 2024Q4

REPORT INFORMATION
  Report Type: Spontaneous
  Country: CA (occurrence: CA)
  Receive Date: 20241016
  Receipt Date: 20241016
  Transmission Date: 20250115
  Serious: Yes (Death, Life-Threatening, Hospitalization, Disabling, Other)
  Sender: Haleon PLC
  Company Number: CA-HALEON-2201076

PATIENT
  Age: 44 Year
  Sex: Female
  Weight: 68 kg

DRUGS (609)
  1. DICLOFENAC DIETHYLAMINE [Suspect]
     Active Substance: DICLOFENAC DIETHYLAMINE
     Indication: Product used for unknown indication
  2. DICLOFENAC DIETHYLAMINE [Suspect]
     Active Substance: DICLOFENAC DIETHYLAMINE
  3. DICLOFENAC DIETHYLAMINE [Suspect]
     Active Substance: DICLOFENAC DIETHYLAMINE
     Route: 048
  4. DICLOFENAC DIETHYLAMINE [Suspect]
     Active Substance: DICLOFENAC DIETHYLAMINE
     Route: 047
  5. DICLOFENAC DIETHYLAMINE [Suspect]
     Active Substance: DICLOFENAC DIETHYLAMINE
     Route: 050
  6. DICLOFENAC DIETHYLAMINE [Suspect]
     Active Substance: DICLOFENAC DIETHYLAMINE
  7. DICLOFENAC DIETHYLAMINE [Suspect]
     Active Substance: DICLOFENAC DIETHYLAMINE
     Route: 058
  8. DICLOFENAC DIETHYLAMINE [Suspect]
     Active Substance: DICLOFENAC DIETHYLAMINE
  9. DICLOFENAC DIETHYLAMINE [Suspect]
     Active Substance: DICLOFENAC DIETHYLAMINE
     Route: 047
  10. DICLOFENAC DIETHYLAMINE [Suspect]
     Active Substance: DICLOFENAC DIETHYLAMINE
     Route: 058
  11. DICLOFENAC DIETHYLAMINE [Suspect]
     Active Substance: DICLOFENAC DIETHYLAMINE
  12. TUMS ULTRA [Suspect]
     Active Substance: CALCIUM CARBONATE
     Indication: Product used for unknown indication
  13. TUMS ULTRA [Suspect]
     Active Substance: CALCIUM CARBONATE
  14. CALTRATE WITH VITAMIN D [Suspect]
     Active Substance: CALCIUM CARBONATE\CHOLECALCIFEROL
     Indication: Rheumatoid arthritis
     Dosage: CONCENTRATION: 1000 IU
  15. CALTRATE WITH VITAMIN D [Suspect]
     Active Substance: CALCIUM CARBONATE\CHOLECALCIFEROL
  16. CALTRATE WITH VITAMIN D [Suspect]
     Active Substance: CALCIUM CARBONATE\CHOLECALCIFEROL
     Route: 016
  17. ADVIL [Suspect]
     Active Substance: IBUPROFEN
     Indication: Product used for unknown indication
  18. ASCORBIC ACID [Suspect]
     Active Substance: ASCORBIC ACID
     Indication: Product used for unknown indication
  19. ASCORBIC ACID [Suspect]
     Active Substance: ASCORBIC ACID
  20. ASCORBIC ACID [Suspect]
     Active Substance: ASCORBIC ACID
     Route: 016
  21. ASCORBIC ACID [Suspect]
     Active Substance: ASCORBIC ACID
  22. DICLOFENAC [Suspect]
     Active Substance: DICLOFENAC
     Indication: Product used for unknown indication
     Route: 047
  23. DICLOFENAC [Suspect]
     Active Substance: DICLOFENAC
     Route: 047
  24. DICLOFENAC [Suspect]
     Active Substance: DICLOFENAC
  25. DICLOFENAC DIETHYLAMINE [Suspect]
     Active Substance: DICLOFENAC DIETHYLAMINE
     Indication: Product used for unknown indication
  26. DICLOFENAC DIETHYLAMINE [Suspect]
     Active Substance: DICLOFENAC DIETHYLAMINE
  27. DICLOFENAC DIETHYLAMINE [Suspect]
     Active Substance: DICLOFENAC DIETHYLAMINE
  28. VOLTAREN [Suspect]
     Active Substance: DICLOFENAC SODIUM
     Indication: Product used for unknown indication
     Route: 048
  29. VOLTAREN [Suspect]
     Active Substance: DICLOFENAC SODIUM
  30. VOLTAREN [Suspect]
     Active Substance: DICLOFENAC SODIUM
     Route: 050
  31. VOLTAREN [Suspect]
     Active Substance: DICLOFENAC SODIUM
  32. CALTRATE [Suspect]
     Active Substance: CALCIUM CARBONATE
     Indication: Product used for unknown indication
  33. COSENTYX [Suspect]
     Active Substance: SECUKINUMAB
     Indication: Rheumatoid arthritis
     Dosage: ROUTE: INJECTION NOS
  34. COSENTYX [Suspect]
     Active Substance: SECUKINUMAB
     Indication: Psoriatic arthropathy
     Route: 005
  35. ERELZI [Suspect]
     Active Substance: ETANERCEPT-SZZS
     Indication: Rheumatoid arthritis
     Route: 058
  36. ERELZI [Suspect]
     Active Substance: ETANERCEPT-SZZS
     Route: 058
  37. ERELZI [Suspect]
     Active Substance: ETANERCEPT-SZZS
  38. ERELZI [Suspect]
     Active Substance: ETANERCEPT-SZZS
     Route: 058
  39. ARAVA [Suspect]
     Active Substance: LEFLUNOMIDE
     Indication: Rheumatoid arthritis
     Route: 048
  40. ARAVA [Suspect]
     Active Substance: LEFLUNOMIDE
  41. ARAVA [Suspect]
     Active Substance: LEFLUNOMIDE
     Route: 048
  42. ARAVA [Suspect]
     Active Substance: LEFLUNOMIDE
     Route: 048
  43. ARAVA [Suspect]
     Active Substance: LEFLUNOMIDE
     Route: 048
  44. ARAVA [Suspect]
     Active Substance: LEFLUNOMIDE
     Route: 019
  45. ARAVA [Suspect]
     Active Substance: LEFLUNOMIDE
     Route: 005
  46. ARAVA [Suspect]
     Active Substance: LEFLUNOMIDE
     Route: 048
  47. ARAVA [Suspect]
     Active Substance: LEFLUNOMIDE
  48. RITUXIMAB [Suspect]
     Active Substance: RITUXIMAB
     Indication: Rheumatoid arthritis
     Route: 041
  49. RITUXIMAB [Suspect]
     Active Substance: RITUXIMAB
     Route: 042
  50. RITUXIMAB [Suspect]
     Active Substance: RITUXIMAB
     Route: 042
  51. RITUXIMAB [Suspect]
     Active Substance: RITUXIMAB
     Route: 058
  52. RITUXIMAB [Suspect]
     Active Substance: RITUXIMAB
  53. RITUXIMAB [Suspect]
     Active Substance: RITUXIMAB
     Route: 058
  54. RITUXIMAB [Suspect]
     Active Substance: RITUXIMAB
     Route: 042
  55. RITUXIMAB [Suspect]
     Active Substance: RITUXIMAB
  56. METHOTREXATE [Suspect]
     Active Substance: METHOTREXATE
     Indication: Rheumatoid arthritis
     Route: 013
  57. METHOTREXATE [Suspect]
     Active Substance: METHOTREXATE
     Route: 058
  58. METHOTREXATE [Suspect]
     Active Substance: METHOTREXATE
     Route: 058
  59. METHOTREXATE [Suspect]
     Active Substance: METHOTREXATE
     Route: 058
  60. METHOTREXATE [Suspect]
     Active Substance: METHOTREXATE
     Route: 058
  61. METHOTREXATE [Suspect]
     Active Substance: METHOTREXATE
  62. METHOTREXATE [Suspect]
     Active Substance: METHOTREXATE
     Route: 042
  63. METHOTREXATE [Suspect]
     Active Substance: METHOTREXATE
  64. METHOTREXATE [Suspect]
     Active Substance: METHOTREXATE
  65. METHOTREXATE [Suspect]
     Active Substance: METHOTREXATE
     Route: 013
  66. METHOTREXATE [Suspect]
     Active Substance: METHOTREXATE
  67. METHOTREXATE [Suspect]
     Active Substance: METHOTREXATE
  68. METHOTREXATE [Suspect]
     Active Substance: METHOTREXATE
  69. METHOTREXATE [Suspect]
     Active Substance: METHOTREXATE
     Route: 013
  70. METHOTREXATE [Suspect]
     Active Substance: METHOTREXATE
     Route: 058
  71. METHOTREXATE [Suspect]
     Active Substance: METHOTREXATE
     Route: 013
  72. METHOTREXATE [Suspect]
     Active Substance: METHOTREXATE
     Route: 058
  73. METHOTREXATE [Suspect]
     Active Substance: METHOTREXATE
     Route: 058
  74. METHOTREXATE [Suspect]
     Active Substance: METHOTREXATE
     Route: 013
  75. METHOTREXATE [Suspect]
     Active Substance: METHOTREXATE
     Route: 013
  76. METHOTREXATE [Suspect]
     Active Substance: METHOTREXATE
     Route: 013
  77. METHOTREXATE [Suspect]
     Active Substance: METHOTREXATE
  78. METHOTREXATE [Suspect]
     Active Substance: METHOTREXATE
     Route: 013
  79. METHOTREXATE [Suspect]
     Active Substance: METHOTREXATE
     Route: 048
  80. METHOTREXATE [Suspect]
     Active Substance: METHOTREXATE
     Route: 016
  81. METHOTREXATE [Suspect]
     Active Substance: METHOTREXATE
     Route: 048
  82. METHOTREXATE [Suspect]
     Active Substance: METHOTREXATE
     Route: 048
  83. METHOTREXATE [Suspect]
     Active Substance: METHOTREXATE
     Route: 048
  84. METHOTREXATE [Suspect]
     Active Substance: METHOTREXATE
     Dosage: DURATION 11 YEARS
     Route: 048
  85. METHOTREXATE [Suspect]
     Active Substance: METHOTREXATE
  86. METHOTREXATE [Suspect]
     Active Substance: METHOTREXATE
     Route: 013
  87. METHOTREXATE [Suspect]
     Active Substance: METHOTREXATE
     Dosage: DURATION 11 YEARS
  88. METHOTREXATE [Suspect]
     Active Substance: METHOTREXATE
     Route: 058
  89. METHOTREXATE [Suspect]
     Active Substance: METHOTREXATE
  90. METHOTREXATE [Suspect]
     Active Substance: METHOTREXATE
     Route: 048
  91. METHOTREXATE [Suspect]
     Active Substance: METHOTREXATE
     Route: 013
  92. METHOTREXATE [Suspect]
     Active Substance: METHOTREXATE
     Route: 048
  93. METHOTREXATE [Suspect]
     Active Substance: METHOTREXATE
     Dosage: DURATION 11 YEARS
     Route: 048
  94. METHOTREXATE [Suspect]
     Active Substance: METHOTREXATE
     Dosage: DURATION 11 YEARS
     Route: 048
  95. METHOTREXATE [Suspect]
     Active Substance: METHOTREXATE
     Route: 048
  96. METHOTREXATE [Suspect]
     Active Substance: METHOTREXATE
     Route: 048
  97. METHOTREXATE [Suspect]
     Active Substance: METHOTREXATE
     Route: 048
  98. METHOTREXATE [Suspect]
     Active Substance: METHOTREXATE
     Route: 048
  99. METHOTREXATE [Suspect]
     Active Substance: METHOTREXATE
     Route: 048
  100. METHOTREXATE [Suspect]
     Active Substance: METHOTREXATE
     Route: 048
  101. METHOTREXATE [Suspect]
     Active Substance: METHOTREXATE
     Route: 048
  102. METHOTREXATE [Suspect]
     Active Substance: METHOTREXATE
     Route: 048
  103. METHOTREXATE [Suspect]
     Active Substance: METHOTREXATE
     Route: 048
  104. METHOTREXATE [Suspect]
     Active Substance: METHOTREXATE
     Route: 048
  105. METHOTREXATE [Suspect]
     Active Substance: METHOTREXATE
     Route: 058
  106. METHOTREXATE [Suspect]
     Active Substance: METHOTREXATE
     Route: 048
  107. METHOTREXATE [Suspect]
     Active Substance: METHOTREXATE
  108. METHOTREXATE [Suspect]
     Active Substance: METHOTREXATE
  109. METHOTREXATE [Suspect]
     Active Substance: METHOTREXATE
  110. MYCOPHENOLATE MOFETIL [Suspect]
     Active Substance: MYCOPHENOLATE MOFETIL
     Indication: Product used for unknown indication
  111. MOXIFLOXACIN [Suspect]
     Active Substance: MOXIFLOXACIN
     Indication: Product used for unknown indication
     Route: 058
  112. CHLORAPREP [Suspect]
     Active Substance: CHLORHEXIDINE GLUCONATE\ISOPROPYL ALCOHOL
     Indication: Product used for unknown indication
     Route: 061
  113. CHLORAPREP [Suspect]
     Active Substance: CHLORHEXIDINE GLUCONATE\ISOPROPYL ALCOHOL
     Route: 061
  114. CHLORAPREP [Suspect]
     Active Substance: CHLORHEXIDINE GLUCONATE\ISOPROPYL ALCOHOL
     Route: 048
  115. CHLORHEXIDINE GLUCONATE [Suspect]
     Active Substance: CHLORHEXIDINE GLUCONATE
     Indication: Product used for unknown indication
     Dosage: FORMULATION: PAD
  116. CHLORHEXIDINE GLUCONATE [Suspect]
     Active Substance: CHLORHEXIDINE GLUCONATE
     Route: 048
  117. CHLORHEXIDINE GLUCONATE [Suspect]
     Active Substance: CHLORHEXIDINE GLUCONATE
     Route: 002
  118. CHLORHEXIDINE GLUCONATE [Suspect]
     Active Substance: CHLORHEXIDINE GLUCONATE
     Dosage: FORMULATION: PAD
  119. CHLORHEXIDINE GLUCONATE [Suspect]
     Active Substance: CHLORHEXIDINE GLUCONATE
     Dosage: FORMULATION: PAD
     Route: 061
  120. CHLORHEXIDINE GLUCONATE [Suspect]
     Active Substance: CHLORHEXIDINE GLUCONATE
     Dosage: FORMULATION: PAD
  121. CHLORHEXIDINE [Suspect]
     Active Substance: CHLORHEXIDINE
     Indication: Product used for unknown indication
     Route: 061
  122. CHLORHEXIDINE [Suspect]
     Active Substance: CHLORHEXIDINE
     Route: 002
  123. CHLORHEXIDINE [Suspect]
     Active Substance: CHLORHEXIDINE
     Route: 048
  124. CHLORHEXIDINE [Suspect]
     Active Substance: CHLORHEXIDINE
  125. CORTISONE [Suspect]
     Active Substance: CORTISONE
     Indication: Rheumatoid arthritis
     Route: 048
  126. CORTISONE [Suspect]
     Active Substance: CORTISONE
     Dosage: CREAM
  127. CORTISONE [Suspect]
     Active Substance: CORTISONE
     Dosage: CREAM
     Route: 058
  128. CORTISONE [Suspect]
     Active Substance: CORTISONE
     Route: 050
  129. CORTISONE [Suspect]
     Active Substance: CORTISONE
     Dosage: GEL
     Route: 058
  130. CORTISONE [Suspect]
     Active Substance: CORTISONE
  131. CORTISONE [Suspect]
     Active Substance: CORTISONE
     Route: 048
  132. CORTISONE [Suspect]
     Active Substance: CORTISONE
  133. CORTISONE [Suspect]
     Active Substance: CORTISONE
     Route: 048
  134. CORTISONE [Suspect]
     Active Substance: CORTISONE
     Route: 058
  135. CORTISONE [Suspect]
     Active Substance: CORTISONE
  136. CORTISONE [Suspect]
     Active Substance: CORTISONE
     Dosage: GEL
     Route: 003
  137. CORTISONE [Suspect]
     Active Substance: CORTISONE
     Dosage: GEL
     Route: 061
  138. CORTISONE [Suspect]
     Active Substance: CORTISONE
     Dosage: GEL
  139. CORTISONE [Suspect]
     Active Substance: CORTISONE
     Route: 058
  140. CORTISONE [Suspect]
     Active Substance: CORTISONE
     Dosage: CREAM
     Route: 003
  141. CORTISONE [Suspect]
     Active Substance: CORTISONE
     Route: 061
  142. CORTISONE [Suspect]
     Active Substance: CORTISONE
     Route: 058
  143. CORTISONE [Suspect]
     Active Substance: CORTISONE
  144. CORTISONE [Suspect]
     Active Substance: CORTISONE
  145. CORTISONE [Suspect]
     Active Substance: CORTISONE
  146. HYDROCORTISONE BUTYRATE [Suspect]
     Active Substance: HYDROCORTISONE BUTYRATE
     Indication: Rheumatoid arthritis
     Route: 058
  147. HYDROCORTISONE BUTYRATE [Suspect]
     Active Substance: HYDROCORTISONE BUTYRATE
  148. HYDROCORTISONE BUTYRATE [Suspect]
     Active Substance: HYDROCORTISONE BUTYRATE
     Route: 050
  149. HYDROCORTISONE BUTYRATE [Suspect]
     Active Substance: HYDROCORTISONE BUTYRATE
  150. HYDROCORTISONE BUTYRATE [Suspect]
     Active Substance: HYDROCORTISONE BUTYRATE
     Route: 048
  151. ISOPROPYL ALCOHOL [Suspect]
     Active Substance: ISOPROPYL ALCOHOL
     Indication: Product used for unknown indication
     Dosage: LIQUID
     Route: 061
  152. ISOPROPYL ALCOHOL [Suspect]
     Active Substance: ISOPROPYL ALCOHOL
     Dosage: LIQUID
     Route: 061
  153. CETIRIZINE HYDROCHLORIDE [Suspect]
     Active Substance: CETIRIZINE HYDROCHLORIDE
     Indication: Rheumatoid arthritis
     Route: 048
  154. CETIRIZINE HYDROCHLORIDE [Suspect]
     Active Substance: CETIRIZINE HYDROCHLORIDE
     Route: 048
  155. CETIRIZINE HYDROCHLORIDE [Suspect]
     Active Substance: CETIRIZINE HYDROCHLORIDE
  156. CETIRIZINE HYDROCHLORIDE [Suspect]
     Active Substance: CETIRIZINE HYDROCHLORIDE
  157. CETIRIZINE HYDROCHLORIDE [Suspect]
     Active Substance: CETIRIZINE HYDROCHLORIDE
     Route: 048
  158. CETIRIZINE HYDROCHLORIDE [Suspect]
     Active Substance: CETIRIZINE HYDROCHLORIDE
  159. CETIRIZINE HYDROCHLORIDE [Suspect]
     Active Substance: CETIRIZINE HYDROCHLORIDE
  160. CETIRIZINE HYDROCHLORIDE [Suspect]
     Active Substance: CETIRIZINE HYDROCHLORIDE
  161. CETIRIZINE HYDROCHLORIDE [Suspect]
     Active Substance: CETIRIZINE HYDROCHLORIDE
     Route: 048
  162. CETIRIZINE HYDROCHLORIDE [Suspect]
     Active Substance: CETIRIZINE HYDROCHLORIDE
     Route: 048
  163. CETIRIZINE HYDROCHLORIDE [Suspect]
     Active Substance: CETIRIZINE HYDROCHLORIDE
  164. CETIRIZINE HYDROCHLORIDE [Suspect]
     Active Substance: CETIRIZINE HYDROCHLORIDE
  165. CETIRIZINE HYDROCHLORIDE [Suspect]
     Active Substance: CETIRIZINE HYDROCHLORIDE
  166. CETIRIZINE HYDROCHLORIDE [Suspect]
     Active Substance: CETIRIZINE HYDROCHLORIDE
  167. CETIRIZINE HYDROCHLORIDE [Suspect]
     Active Substance: CETIRIZINE HYDROCHLORIDE
  168. CETIRIZINE HYDROCHLORIDE [Suspect]
     Active Substance: CETIRIZINE HYDROCHLORIDE
  169. CETIRIZINE HYDROCHLORIDE [Suspect]
     Active Substance: CETIRIZINE HYDROCHLORIDE
  170. CETIRIZINE HYDROCHLORIDE [Suspect]
     Active Substance: CETIRIZINE HYDROCHLORIDE
  171. CETIRIZINE HYDROCHLORIDE [Suspect]
     Active Substance: CETIRIZINE HYDROCHLORIDE
  172. CETIRIZINE HYDROCHLORIDE [Suspect]
     Active Substance: CETIRIZINE HYDROCHLORIDE
  173. CETIRIZINE HYDROCHLORIDE [Suspect]
     Active Substance: CETIRIZINE HYDROCHLORIDE
  174. CETIRIZINE HYDROCHLORIDE [Suspect]
     Active Substance: CETIRIZINE HYDROCHLORIDE
  175. CETIRIZINE HYDROCHLORIDE [Suspect]
     Active Substance: CETIRIZINE HYDROCHLORIDE
  176. CETIRIZINE HYDROCHLORIDE [Suspect]
     Active Substance: CETIRIZINE HYDROCHLORIDE
  177. CETIRIZINE HYDROCHLORIDE [Suspect]
     Active Substance: CETIRIZINE HYDROCHLORIDE
     Route: 048
  178. CETIRIZINE HYDROCHLORIDE [Suspect]
     Active Substance: CETIRIZINE HYDROCHLORIDE
  179. CETIRIZINE HYDROCHLORIDE [Suspect]
     Active Substance: CETIRIZINE HYDROCHLORIDE
     Route: 048
  180. CETIRIZINE HYDROCHLORIDE [Suspect]
     Active Substance: CETIRIZINE HYDROCHLORIDE
  181. CETIRIZINE HYDROCHLORIDE [Suspect]
     Active Substance: CETIRIZINE HYDROCHLORIDE
     Route: 048
  182. CETIRIZINE HYDROCHLORIDE [Suspect]
     Active Substance: CETIRIZINE HYDROCHLORIDE
  183. CETIRIZINE HYDROCHLORIDE [Suspect]
     Active Substance: CETIRIZINE HYDROCHLORIDE
  184. CETIRIZINE HYDROCHLORIDE [Suspect]
     Active Substance: CETIRIZINE HYDROCHLORIDE
     Route: 048
  185. CETIRIZINE HYDROCHLORIDE [Suspect]
     Active Substance: CETIRIZINE HYDROCHLORIDE
  186. FLUMETHASONE PIVALATE [Suspect]
     Active Substance: FLUMETHASONE PIVALATE
     Indication: Rheumatoid arthritis
     Route: 058
  187. FLUMETHASONE PIVALATE [Suspect]
     Active Substance: FLUMETHASONE PIVALATE
     Route: 003
  188. FLUMETHASONE PIVALATE [Suspect]
     Active Substance: FLUMETHASONE PIVALATE
  189. SIMPONI [Suspect]
     Active Substance: GOLIMUMAB
     Indication: Rheumatoid arthritis
  190. SIMPONI [Suspect]
     Active Substance: GOLIMUMAB
     Indication: Psoriatic arthropathy
     Route: 058
  191. SIMPONI [Suspect]
     Active Substance: GOLIMUMAB
  192. SIMPONI [Suspect]
     Active Substance: GOLIMUMAB
     Route: 058
  193. SIMPONI [Suspect]
     Active Substance: GOLIMUMAB
     Route: 058
  194. SIMPONI [Suspect]
     Active Substance: GOLIMUMAB
     Route: 058
  195. SIMPONI [Suspect]
     Active Substance: GOLIMUMAB
     Route: 052
  196. SIMPONI [Suspect]
     Active Substance: GOLIMUMAB
     Route: 042
  197. SIMPONI [Suspect]
     Active Substance: GOLIMUMAB
     Route: 058
  198. ORENCIA [Suspect]
     Active Substance: ABATACEPT
     Indication: Rheumatoid arthritis
     Route: 058
  199. ORENCIA [Suspect]
     Active Substance: ABATACEPT
     Indication: Psoriatic arthropathy
     Route: 058
  200. ORENCIA [Suspect]
     Active Substance: ABATACEPT
     Route: 042
  201. ORENCIA [Suspect]
     Active Substance: ABATACEPT
     Route: 015
  202. ORENCIA [Suspect]
     Active Substance: ABATACEPT
     Route: 058
  203. ORENCIA [Suspect]
     Active Substance: ABATACEPT
     Route: 058
  204. ORENCIA [Suspect]
     Active Substance: ABATACEPT
  205. ORENCIA [Suspect]
     Active Substance: ABATACEPT
     Route: 058
  206. ORENCIA [Suspect]
     Active Substance: ABATACEPT
     Route: 058
  207. ORENCIA [Suspect]
     Active Substance: ABATACEPT
     Route: 042
  208. ORENCIA [Suspect]
     Active Substance: ABATACEPT
     Route: 042
  209. ORENCIA [Suspect]
     Active Substance: ABATACEPT
     Route: 041
  210. ORENCIA [Suspect]
     Active Substance: ABATACEPT
  211. ORENCIA [Suspect]
     Active Substance: ABATACEPT
     Route: 058
  212. ORENCIA [Suspect]
     Active Substance: ABATACEPT
     Route: 041
  213. ORENCIA [Suspect]
     Active Substance: ABATACEPT
     Route: 058
  214. ORENCIA [Suspect]
     Active Substance: ABATACEPT
     Route: 058
  215. ORENCIA [Suspect]
     Active Substance: ABATACEPT
  216. ORENCIA [Suspect]
     Active Substance: ABATACEPT
     Route: 042
  217. ORENCIA [Suspect]
     Active Substance: ABATACEPT
     Route: 058
  218. ORENCIA [Suspect]
     Active Substance: ABATACEPT
     Route: 058
  219. ORENCIA [Suspect]
     Active Substance: ABATACEPT
     Route: 058
  220. ORENCIA [Suspect]
     Active Substance: ABATACEPT
     Route: 058
  221. ORENCIA [Suspect]
     Active Substance: ABATACEPT
     Route: 058
  222. ORENCIA [Suspect]
     Active Substance: ABATACEPT
     Route: 042
  223. ORENCIA [Suspect]
     Active Substance: ABATACEPT
  224. ORENCIA [Suspect]
     Active Substance: ABATACEPT
     Route: 042
  225. ORENCIA [Suspect]
     Active Substance: ABATACEPT
     Route: 048
  226. OXYCODONE TEREPHTHALATE [Suspect]
     Active Substance: OXYCODONE TEREPHTHALATE
     Indication: Product used for unknown indication
     Route: 016
  227. OXYCODONE TEREPHTHALATE [Suspect]
     Active Substance: OXYCODONE TEREPHTHALATE
  228. PREDNISONE [Suspect]
     Active Substance: PREDNISONE
     Indication: Rheumatoid arthritis
  229. PREDNISONE [Suspect]
     Active Substance: PREDNISONE
     Indication: Psoriatic arthropathy
     Route: 048
  230. PREDNISONE [Suspect]
     Active Substance: PREDNISONE
     Indication: Systemic lupus erythematosus
     Route: 048
  231. PREDNISONE [Suspect]
     Active Substance: PREDNISONE
     Indication: Synovitis
  232. PREDNISONE [Suspect]
     Active Substance: PREDNISONE
     Indication: Pemphigus
  233. PREDNISONE [Suspect]
     Active Substance: PREDNISONE
     Indication: Condition aggravated
     Route: 048
  234. PREDNISONE [Suspect]
     Active Substance: PREDNISONE
     Route: 048
  235. PREDNISONE [Suspect]
     Active Substance: PREDNISONE
  236. PREDNISONE [Suspect]
     Active Substance: PREDNISONE
     Route: 048
  237. PREDNISONE [Suspect]
     Active Substance: PREDNISONE
  238. PREDNISONE [Suspect]
     Active Substance: PREDNISONE
     Route: 042
  239. PREDNISONE [Suspect]
     Active Substance: PREDNISONE
     Route: 048
  240. PSEUDOEPHEDRINE HYDROCHLORIDE [Suspect]
     Active Substance: PSEUDOEPHEDRINE HYDROCHLORIDE
     Indication: Rheumatoid arthritis
  241. PSEUDOEPHEDRINE HYDROCHLORIDE [Suspect]
     Active Substance: PSEUDOEPHEDRINE HYDROCHLORIDE
  242. PSEUDOEPHEDRINE HYDROCHLORIDE [Suspect]
     Active Substance: PSEUDOEPHEDRINE HYDROCHLORIDE
  243. REMICADE [Suspect]
     Active Substance: INFLIXIMAB
     Indication: Rheumatoid arthritis
  244. REMICADE [Suspect]
     Active Substance: INFLIXIMAB
     Dosage: POWDER FOR SOLUTION
     Route: 042
  245. REMICADE [Suspect]
     Active Substance: INFLIXIMAB
     Route: 042
  246. SULFAMETHOXAZOLE [Suspect]
     Active Substance: SULFAMETHOXAZOLE
     Indication: Product used for unknown indication
  247. HYDROXYCHLOROQUINE SULFATE [Suspect]
     Active Substance: HYDROXYCHLOROQUINE SULFATE
     Indication: Rheumatoid arthritis
  248. SULFAMETHOXAZOLE\TRIMETHOPRIM [Suspect]
     Active Substance: SULFAMETHOXAZOLE\TRIMETHOPRIM
     Indication: Product used for unknown indication
     Route: 067
  249. SULFASALAZINE [Suspect]
     Active Substance: SULFASALAZINE
     Indication: Rheumatoid arthritis
     Route: 048
  250. SULFASALAZINE [Suspect]
     Active Substance: SULFASALAZINE
     Route: 048
  251. SULFASALAZINE [Suspect]
     Active Substance: SULFASALAZINE
     Route: 048
  252. SULFASALAZINE [Suspect]
     Active Substance: SULFASALAZINE
  253. SULFASALAZINE [Suspect]
     Active Substance: SULFASALAZINE
  254. SULFASALAZINE [Suspect]
     Active Substance: SULFASALAZINE
     Route: 048
  255. SULFASALAZINE [Suspect]
     Active Substance: SULFASALAZINE
  256. SULFASALAZINE [Suspect]
     Active Substance: SULFASALAZINE
     Route: 048
  257. SULFASALAZINE [Suspect]
     Active Substance: SULFASALAZINE
     Route: 048
  258. SULFASALAZINE [Suspect]
     Active Substance: SULFASALAZINE
  259. SULFASALAZINE [Suspect]
     Active Substance: SULFASALAZINE
     Route: 048
  260. SULFASALAZINE [Suspect]
     Active Substance: SULFASALAZINE
  261. SULFASALAZINE [Suspect]
     Active Substance: SULFASALAZINE
     Route: 048
  262. SULFASALAZINE [Suspect]
     Active Substance: SULFASALAZINE
     Route: 048
  263. SULFASALAZINE [Suspect]
     Active Substance: SULFASALAZINE
     Route: 048
  264. SULFASALAZINE [Suspect]
     Active Substance: SULFASALAZINE
     Dosage: TIME INTERVAL: CYCLICAL
     Route: 048
  265. SULFASALAZINE [Suspect]
     Active Substance: SULFASALAZINE
     Route: 048
  266. SULFASALAZINE [Suspect]
     Active Substance: SULFASALAZINE
     Route: 048
  267. SULFASALAZINE [Suspect]
     Active Substance: SULFASALAZINE
     Route: 048
  268. SULFASALAZINE [Suspect]
     Active Substance: SULFASALAZINE
     Route: 048
  269. SULFASALAZINE [Suspect]
     Active Substance: SULFASALAZINE
  270. SULFASALAZINE [Suspect]
     Active Substance: SULFASALAZINE
  271. SULFASALAZINE [Suspect]
     Active Substance: SULFASALAZINE
     Route: 048
  272. SULFASALAZINE [Suspect]
     Active Substance: SULFASALAZINE
     Route: 048
  273. SULFASALAZINE [Suspect]
     Active Substance: SULFASALAZINE
     Route: 058
  274. SULFASALAZINE [Suspect]
     Active Substance: SULFASALAZINE
     Route: 048
  275. SULFASALAZINE [Suspect]
     Active Substance: SULFASALAZINE
     Route: 048
  276. SULFASALAZINE [Suspect]
     Active Substance: SULFASALAZINE
     Route: 058
  277. SULFASALAZINE [Suspect]
     Active Substance: SULFASALAZINE
     Route: 048
  278. SULFASALAZINE [Suspect]
     Active Substance: SULFASALAZINE
     Route: 048
  279. SULFASALAZINE [Suspect]
     Active Substance: SULFASALAZINE
  280. SULFASALAZINE [Suspect]
     Active Substance: SULFASALAZINE
  281. SULFASALAZINE [Suspect]
     Active Substance: SULFASALAZINE
  282. SULFASALAZINE [Suspect]
     Active Substance: SULFASALAZINE
     Route: 048
  283. SULFASALAZINE [Suspect]
     Active Substance: SULFASALAZINE
     Route: 048
  284. SULFASALAZINE [Suspect]
     Active Substance: SULFASALAZINE
  285. TOPICORT [Suspect]
     Active Substance: DESOXIMETASONE
     Indication: Rheumatoid arthritis
     Route: 058
  286. TOPICORT [Suspect]
     Active Substance: DESOXIMETASONE
     Route: 061
  287. TOPICORT [Suspect]
     Active Substance: DESOXIMETASONE
     Route: 048
  288. TOPICORT [Suspect]
     Active Substance: DESOXIMETASONE
     Route: 061
  289. TOPICORT [Suspect]
     Active Substance: DESOXIMETASONE
     Route: 050
  290. XELJANZ [Suspect]
     Active Substance: TOFACITINIB CITRATE
     Indication: Rheumatoid arthritis
     Route: 048
  291. XELJANZ [Suspect]
     Active Substance: TOFACITINIB CITRATE
     Route: 048
  292. XELJANZ [Suspect]
     Active Substance: TOFACITINIB CITRATE
  293. XELJANZ [Suspect]
     Active Substance: TOFACITINIB CITRATE
  294. XELJANZ [Suspect]
     Active Substance: TOFACITINIB CITRATE
  295. XELJANZ [Suspect]
     Active Substance: TOFACITINIB CITRATE
  296. XELJANZ [Suspect]
     Active Substance: TOFACITINIB CITRATE
  297. XELJANZ [Suspect]
     Active Substance: TOFACITINIB CITRATE
  298. XELJANZ [Suspect]
     Active Substance: TOFACITINIB CITRATE
  299. XELJANZ [Suspect]
     Active Substance: TOFACITINIB CITRATE
     Route: 048
  300. XELJANZ [Suspect]
     Active Substance: TOFACITINIB CITRATE
  301. XELJANZ [Suspect]
     Active Substance: TOFACITINIB CITRATE
  302. XELJANZ [Suspect]
     Active Substance: TOFACITINIB CITRATE
  303. BORAGE OIL [Suspect]
     Active Substance: BORAGE OIL
     Indication: Product used for unknown indication
  304. NAPROXEN SODIUM [Suspect]
     Active Substance: NAPROXEN SODIUM
     Indication: Rheumatoid arthritis
  305. NAPROXEN SODIUM [Suspect]
     Active Substance: NAPROXEN SODIUM
  306. PHTHALYLSULFATHIAZOLE [Suspect]
     Active Substance: PHTHALYLSULFATHIAZOLE
     Indication: Rheumatoid arthritis
  307. PHTHALYLSULFATHIAZOLE [Suspect]
     Active Substance: PHTHALYLSULFATHIAZOLE
     Route: 048
  308. PHTHALYLSULFATHIAZOLE [Suspect]
     Active Substance: PHTHALYLSULFATHIAZOLE
     Route: 048
  309. PHTHALYLSULFATHIAZOLE [Suspect]
     Active Substance: PHTHALYLSULFATHIAZOLE
     Route: 048
  310. PHTHALYLSULFATHIAZOLE [Suspect]
     Active Substance: PHTHALYLSULFATHIAZOLE
  311. PHTHALYLSULFATHIAZOLE [Suspect]
     Active Substance: PHTHALYLSULFATHIAZOLE
     Route: 048
  312. PHTHALYLSULFATHIAZOLE [Suspect]
     Active Substance: PHTHALYLSULFATHIAZOLE
     Route: 042
  313. PHTHALYLSULFATHIAZOLE [Suspect]
     Active Substance: PHTHALYLSULFATHIAZOLE
     Route: 048
  314. PHTHALYLSULFATHIAZOLE [Suspect]
     Active Substance: PHTHALYLSULFATHIAZOLE
  315. PHTHALYLSULFATHIAZOLE [Suspect]
     Active Substance: PHTHALYLSULFATHIAZOLE
     Route: 016
  316. PHTHALYLSULFATHIAZOLE [Suspect]
     Active Substance: PHTHALYLSULFATHIAZOLE
     Route: 042
  317. PHTHALYLSULFATHIAZOLE [Suspect]
     Active Substance: PHTHALYLSULFATHIAZOLE
     Route: 048
  318. PERIOGARD [Suspect]
     Active Substance: CHLORHEXIDINE GLUCONATE
     Indication: Product used for unknown indication
     Route: 065
  319. PERIOGARD [Suspect]
     Active Substance: CHLORHEXIDINE GLUCONATE
     Dosage: ALCOHOL FREE
     Route: 002
  320. PERIOGARD [Suspect]
     Active Substance: CHLORHEXIDINE GLUCONATE
  321. PERIOGARD [Suspect]
     Active Substance: CHLORHEXIDINE GLUCONATE
     Route: 048
  322. PERIOGARD [Suspect]
     Active Substance: CHLORHEXIDINE GLUCONATE
     Route: 016
  323. SULFAMETHOXAZOLE AND TRIMETHOPRIM [Suspect]
     Active Substance: SULFAMETHOXAZOLE\TRIMETHOPRIM
     Indication: Product used for unknown indication
  324. SULFAMETHOXAZOLE AND TRIMETHOPRIM [Suspect]
     Active Substance: SULFAMETHOXAZOLE\TRIMETHOPRIM
  325. ASACOL [Suspect]
     Active Substance: MESALAMINE
     Indication: Product used for unknown indication
     Dosage: ENTERIC COATED
  326. LYRICA [Suspect]
     Active Substance: PREGABALIN
     Indication: Product used for unknown indication
  327. OTEZLA [Suspect]
     Active Substance: APREMILAST
     Indication: Product used for unknown indication
     Route: 048
  328. OTEZLA [Suspect]
     Active Substance: APREMILAST
     Route: 048
  329. OTEZLA [Suspect]
     Active Substance: APREMILAST
  330. CETIRIZINE HYDROCHLORIDE [Suspect]
     Active Substance: CETIRIZINE HYDROCHLORIDE
     Indication: Rheumatoid arthritis
     Route: 048
  331. CETIRIZINE HYDROCHLORIDE [Suspect]
     Active Substance: CETIRIZINE HYDROCHLORIDE
     Indication: Urticaria
  332. CETIRIZINE HYDROCHLORIDE [Suspect]
     Active Substance: CETIRIZINE HYDROCHLORIDE
  333. CETIRIZINE HYDROCHLORIDE [Suspect]
     Active Substance: CETIRIZINE HYDROCHLORIDE
  334. CETIRIZINE HYDROCHLORIDE [Suspect]
     Active Substance: CETIRIZINE HYDROCHLORIDE
     Route: 016
  335. CETIRIZINE HYDROCHLORIDE [Suspect]
     Active Substance: CETIRIZINE HYDROCHLORIDE
     Route: 005
  336. CETIRIZINE HYDROCHLORIDE\PSEUDOEPHEDRINE HYDROCHLORIDE [Suspect]
     Active Substance: CETIRIZINE HYDROCHLORIDE\PSEUDOEPHEDRINE HYDROCHLORIDE
     Indication: Rheumatoid arthritis
  337. CETIRIZINE HYDROCHLORIDE\PSEUDOEPHEDRINE HYDROCHLORIDE [Suspect]
     Active Substance: CETIRIZINE HYDROCHLORIDE\PSEUDOEPHEDRINE HYDROCHLORIDE
     Dosage: EXTENDED-RELEASE
  338. CETIRIZINE HYDROCHLORIDE\PSEUDOEPHEDRINE HYDROCHLORIDE [Suspect]
     Active Substance: CETIRIZINE HYDROCHLORIDE\PSEUDOEPHEDRINE HYDROCHLORIDE
  339. CETIRIZINE HYDROCHLORIDE\PSEUDOEPHEDRINE HYDROCHLORIDE [Suspect]
     Active Substance: CETIRIZINE HYDROCHLORIDE\PSEUDOEPHEDRINE HYDROCHLORIDE
     Route: 048
  340. CETIRIZINE HYDROCHLORIDE\PSEUDOEPHEDRINE HYDROCHLORIDE [Suspect]
     Active Substance: CETIRIZINE HYDROCHLORIDE\PSEUDOEPHEDRINE HYDROCHLORIDE
     Route: 048
  341. CETIRIZINE HYDROCHLORIDE\PSEUDOEPHEDRINE HYDROCHLORIDE [Suspect]
     Active Substance: CETIRIZINE HYDROCHLORIDE\PSEUDOEPHEDRINE HYDROCHLORIDE
     Route: 048
  342. CETIRIZINE HYDROCHLORIDE\PSEUDOEPHEDRINE HYDROCHLORIDE [Suspect]
     Active Substance: CETIRIZINE HYDROCHLORIDE\PSEUDOEPHEDRINE HYDROCHLORIDE
     Route: 048
  343. STELARA [Suspect]
     Active Substance: USTEKINUMAB
     Indication: Rheumatoid arthritis
     Route: 058
  344. STELARA [Suspect]
     Active Substance: USTEKINUMAB
     Route: 058
  345. STELARA [Suspect]
     Active Substance: USTEKINUMAB
     Route: 042
  346. STELARA [Suspect]
     Active Substance: USTEKINUMAB
     Route: 058
  347. STELARA [Suspect]
     Active Substance: USTEKINUMAB
     Route: 042
  348. TOCILIZUMAB [Suspect]
     Active Substance: TOCILIZUMAB
     Indication: Rheumatoid arthritis
  349. TOCILIZUMAB [Suspect]
     Active Substance: TOCILIZUMAB
  350. TOFACITINIB CITRATE [Suspect]
     Active Substance: TOFACITINIB CITRATE
     Indication: Rheumatoid arthritis
  351. TOFACITINIB CITRATE [Suspect]
     Active Substance: TOFACITINIB CITRATE
     Indication: Psoriatic arthropathy
  352. TOFACITINIB CITRATE [Suspect]
     Active Substance: TOFACITINIB CITRATE
     Route: 048
  353. TOFACITINIB CITRATE [Suspect]
     Active Substance: TOFACITINIB CITRATE
     Route: 058
  354. TOFACITINIB CITRATE [Suspect]
     Active Substance: TOFACITINIB CITRATE
     Route: 048
  355. TOFACITINIB CITRATE [Suspect]
     Active Substance: TOFACITINIB CITRATE
  356. TRAMADOL HYDROCHLORIDE [Suspect]
     Active Substance: TRAMADOL HYDROCHLORIDE
     Indication: Product used for unknown indication
  357. USTEKINUMAB [Suspect]
     Active Substance: USTEKINUMAB
     Indication: Psoriatic arthropathy
     Route: 042
  358. USTEKINUMAB [Suspect]
     Active Substance: USTEKINUMAB
     Route: 058
  359. MINOCYCLINE HYDROCHLORIDE [Suspect]
     Active Substance: MINOCYCLINE HYDROCHLORIDE
     Indication: Product used for unknown indication
  360. MINOCYCLINE HYDROCHLORIDE [Suspect]
     Active Substance: MINOCYCLINE HYDROCHLORIDE
  361. ALENDRONATE SODIUM [Suspect]
     Active Substance: ALENDRONATE SODIUM
     Indication: Rheumatoid arthritis
  362. PREGABALIN [Suspect]
     Active Substance: PREGABALIN
     Indication: Product used for unknown indication
  363. DILTIAZEM [Suspect]
     Active Substance: DILTIAZEM
     Indication: Product used for unknown indication
  364. PANTOPRAZOLE SODIUM [Suspect]
     Active Substance: PANTOPRAZOLE SODIUM
     Indication: Product used for unknown indication
  365. PANTOPRAZOLE SODIUM [Suspect]
     Active Substance: PANTOPRAZOLE SODIUM
     Route: 016
  366. DILTIAZEM HYDROCHLORIDE [Suspect]
     Active Substance: DILTIAZEM HYDROCHLORIDE
     Indication: Product used for unknown indication
  367. DILTIAZEM HYDROCHLORIDE [Suspect]
     Active Substance: DILTIAZEM HYDROCHLORIDE
     Dosage: LIQUID
     Route: 042
  368. APREMILAST [Suspect]
     Active Substance: APREMILAST
     Indication: Product used for unknown indication
  369. APREMILAST [Suspect]
     Active Substance: APREMILAST
  370. APREMILAST [Suspect]
     Active Substance: APREMILAST
     Route: 048
  371. TRIAMCINOLONE ACETONIDE [Suspect]
     Active Substance: TRIAMCINOLONE ACETONIDE
     Indication: Rheumatoid arthritis
     Dosage: SUSPENSION
     Route: 014
  372. LEFLUNOMIDE [Suspect]
     Active Substance: LEFLUNOMIDE
     Indication: Rheumatoid arthritis
     Route: 048
  373. LEFLUNOMIDE [Suspect]
     Active Substance: LEFLUNOMIDE
     Route: 048
  374. LEFLUNOMIDE [Suspect]
     Active Substance: LEFLUNOMIDE
     Route: 048
  375. LEFLUNOMIDE [Suspect]
     Active Substance: LEFLUNOMIDE
  376. ABATACEPT [Suspect]
     Active Substance: ABATACEPT
     Indication: Rheumatoid arthritis
     Route: 042
  377. METHOTREXATE SODIUM [Suspect]
     Active Substance: METHOTREXATE SODIUM
     Indication: Rheumatoid arthritis
     Route: 048
  378. METHOTREXATE SODIUM [Suspect]
     Active Substance: METHOTREXATE SODIUM
     Route: 058
  379. METHOTREXATE SODIUM [Suspect]
     Active Substance: METHOTREXATE SODIUM
     Route: 048
  380. METHOTREXATE SODIUM [Suspect]
     Active Substance: METHOTREXATE SODIUM
     Route: 048
  381. ACTEMRA [Suspect]
     Active Substance: TOCILIZUMAB
     Indication: Rheumatoid arthritis
     Route: 058
  382. ACTEMRA [Suspect]
     Active Substance: TOCILIZUMAB
  383. ACTEMRA [Suspect]
     Active Substance: TOCILIZUMAB
  384. ACTEMRA [Suspect]
     Active Substance: TOCILIZUMAB
  385. ACTEMRA [Suspect]
     Active Substance: TOCILIZUMAB
     Route: 042
  386. ACTEMRA [Suspect]
     Active Substance: TOCILIZUMAB
     Route: 042
  387. ACTEMRA [Suspect]
     Active Substance: TOCILIZUMAB
     Route: 042
  388. ACTEMRA [Suspect]
     Active Substance: TOCILIZUMAB
     Route: 042
  389. ACTEMRA [Suspect]
     Active Substance: TOCILIZUMAB
     Route: 048
  390. ACTEMRA [Suspect]
     Active Substance: TOCILIZUMAB
     Route: 048
  391. ACTEMRA [Suspect]
     Active Substance: TOCILIZUMAB
     Route: 058
  392. ACTEMRA [Suspect]
     Active Substance: TOCILIZUMAB
  393. ACTEMRA [Suspect]
     Active Substance: TOCILIZUMAB
     Route: 042
  394. ACTEMRA [Suspect]
     Active Substance: TOCILIZUMAB
     Route: 042
  395. ACTEMRA [Suspect]
     Active Substance: TOCILIZUMAB
     Route: 042
  396. ACTEMRA [Suspect]
     Active Substance: TOCILIZUMAB
     Route: 042
  397. ACTEMRA [Suspect]
     Active Substance: TOCILIZUMAB
     Route: 042
  398. ACTEMRA [Suspect]
     Active Substance: TOCILIZUMAB
     Route: 061
  399. ACTEMRA [Suspect]
     Active Substance: TOCILIZUMAB
     Route: 058
  400. ACTEMRA [Suspect]
     Active Substance: TOCILIZUMAB
     Route: 042
  401. ACTEMRA [Suspect]
     Active Substance: TOCILIZUMAB
     Route: 042
  402. ACTEMRA [Suspect]
     Active Substance: TOCILIZUMAB
     Route: 048
  403. ACTEMRA [Suspect]
     Active Substance: TOCILIZUMAB
     Route: 042
  404. ACTEMRA [Suspect]
     Active Substance: TOCILIZUMAB
     Route: 042
  405. ACTEMRA [Suspect]
     Active Substance: TOCILIZUMAB
     Route: 042
  406. ACTEMRA [Suspect]
     Active Substance: TOCILIZUMAB
     Route: 042
  407. ACTEMRA [Suspect]
     Active Substance: TOCILIZUMAB
     Route: 016
  408. ACTEMRA [Suspect]
     Active Substance: TOCILIZUMAB
     Route: 058
  409. ACTEMRA [Suspect]
     Active Substance: TOCILIZUMAB
  410. ACTEMRA [Suspect]
     Active Substance: TOCILIZUMAB
     Route: 042
  411. ACTEMRA [Suspect]
     Active Substance: TOCILIZUMAB
     Route: 042
  412. ACTEMRA [Suspect]
     Active Substance: TOCILIZUMAB
     Route: 042
  413. ACTEMRA [Suspect]
     Active Substance: TOCILIZUMAB
  414. ACTEMRA [Suspect]
     Active Substance: TOCILIZUMAB
  415. ACTEMRA [Suspect]
     Active Substance: TOCILIZUMAB
     Route: 058
  416. ALENDRONATE SODIUM [Suspect]
     Active Substance: ALENDRONATE SODIUM
     Indication: Rheumatoid arthritis
  417. ALENDRONATE SODIUM [Suspect]
     Active Substance: ALENDRONATE SODIUM
     Route: 048
  418. INFLIXIMAB [Suspect]
     Active Substance: INFLIXIMAB
     Indication: Rheumatoid arthritis
  419. INFLIXIMAB [Suspect]
     Active Substance: INFLIXIMAB
     Indication: Psoriatic arthropathy
     Route: 042
  420. INFLIXIMAB [Suspect]
     Active Substance: INFLIXIMAB
     Route: 042
  421. INFLIXIMAB [Suspect]
     Active Substance: INFLIXIMAB
     Route: 042
  422. INFLIXIMAB [Suspect]
     Active Substance: INFLIXIMAB
  423. INFLIXIMAB [Suspect]
     Active Substance: INFLIXIMAB
     Route: 042
  424. DICLOFENAC SODIUM [Suspect]
     Active Substance: DICLOFENAC SODIUM
     Indication: Product used for unknown indication
  425. DICLOFENAC SODIUM [Suspect]
     Active Substance: DICLOFENAC SODIUM
     Route: 048
  426. DICLOFENAC SODIUM [Suspect]
     Active Substance: DICLOFENAC SODIUM
     Route: 047
  427. DICLOFENAC SODIUM [Suspect]
     Active Substance: DICLOFENAC SODIUM
  428. DICLOFENAC SODIUM [Suspect]
     Active Substance: DICLOFENAC SODIUM
     Dosage: ENTERIC COATED
  429. PREDNISONE [Suspect]
     Active Substance: PREDNISONE
     Indication: Rheumatoid arthritis
     Route: 048
  430. PREDNISONE [Suspect]
     Active Substance: PREDNISONE
     Indication: Systemic lupus erythematosus
     Route: 048
  431. PREDNISONE [Suspect]
     Active Substance: PREDNISONE
     Indication: Synovitis
     Route: 048
  432. PREDNISONE [Suspect]
     Active Substance: PREDNISONE
     Indication: Psoriatic arthropathy
     Route: 048
  433. PREDNISONE [Suspect]
     Active Substance: PREDNISONE
     Indication: Pemphigus
  434. PREDNISONE [Suspect]
     Active Substance: PREDNISONE
     Indication: Inflammation
  435. PREDNISONE [Suspect]
     Active Substance: PREDNISONE
     Indication: Bursitis
  436. APREPITANT [Suspect]
     Active Substance: APREPITANT
     Indication: Product used for unknown indication
  437. APREPITANT [Suspect]
     Active Substance: APREPITANT
     Route: 042
  438. APREPITANT [Suspect]
     Active Substance: APREPITANT
  439. APREPITANT [Suspect]
     Active Substance: APREPITANT
     Route: 048
  440. CELEBREX [Suspect]
     Active Substance: CELECOXIB
     Indication: Arthritis
     Route: 048
  441. CELEBREX [Suspect]
     Active Substance: CELECOXIB
     Route: 048
  442. CELECOXIB [Suspect]
     Active Substance: CELECOXIB
     Indication: Product used for unknown indication
  443. CELECOXIB [Suspect]
     Active Substance: CELECOXIB
  444. CELECOXIB [Suspect]
     Active Substance: CELECOXIB
  445. CERTOLIZUMAB PEGOL [Suspect]
     Active Substance: CERTOLIZUMAB PEGOL
     Indication: Product used for unknown indication
  446. CETIRIZINE [Suspect]
     Active Substance: CETIRIZINE HYDROCHLORIDE
     Indication: Rheumatoid arthritis
     Route: 048
  447. CETIRIZINE [Suspect]
     Active Substance: CETIRIZINE HYDROCHLORIDE
  448. CETIRIZINE [Suspect]
     Active Substance: CETIRIZINE HYDROCHLORIDE
     Route: 048
  449. CETIRIZINE [Suspect]
     Active Substance: CETIRIZINE HYDROCHLORIDE
  450. CETIRIZINE [Suspect]
     Active Substance: CETIRIZINE HYDROCHLORIDE
     Route: 048
  451. CETIRIZINE [Suspect]
     Active Substance: CETIRIZINE HYDROCHLORIDE
  452. CETIRIZINE [Suspect]
     Active Substance: CETIRIZINE HYDROCHLORIDE
  453. CETIRIZINE [Suspect]
     Active Substance: CETIRIZINE HYDROCHLORIDE
  454. CIMZIA [Suspect]
     Active Substance: CERTOLIZUMAB PEGOL
     Indication: Rheumatoid arthritis
  455. CIMZIA [Suspect]
     Active Substance: CERTOLIZUMAB PEGOL
     Indication: Psoriasis
     Route: 058
  456. CIMZIA [Suspect]
     Active Substance: CERTOLIZUMAB PEGOL
     Indication: Psoriatic arthropathy
     Route: 058
  457. CIMZIA [Suspect]
     Active Substance: CERTOLIZUMAB PEGOL
     Route: 058
  458. CIMZIA [Suspect]
     Active Substance: CERTOLIZUMAB PEGOL
     Route: 042
  459. CIMZIA [Suspect]
     Active Substance: CERTOLIZUMAB PEGOL
     Route: 058
  460. CIMZIA [Suspect]
     Active Substance: CERTOLIZUMAB PEGOL
     Route: 058
  461. CIMZIA [Suspect]
     Active Substance: CERTOLIZUMAB PEGOL
     Route: 058
  462. CIMZIA [Suspect]
     Active Substance: CERTOLIZUMAB PEGOL
  463. CIMZIA [Suspect]
     Active Substance: CERTOLIZUMAB PEGOL
     Route: 005
  464. CIMZIA [Suspect]
     Active Substance: CERTOLIZUMAB PEGOL
     Route: 058
  465. CIMZIA [Suspect]
     Active Substance: CERTOLIZUMAB PEGOL
  466. CIMZIA [Suspect]
     Active Substance: CERTOLIZUMAB PEGOL
     Route: 058
  467. CIMZIA [Suspect]
     Active Substance: CERTOLIZUMAB PEGOL
     Route: 058
  468. CORTISONE ACETATE [Suspect]
     Active Substance: CORTISONE ACETATE
     Indication: Rheumatoid arthritis
     Route: 048
  469. CORTISONE ACETATE [Suspect]
     Active Substance: CORTISONE ACETATE
     Route: 061
  470. CORTISONE ACETATE [Suspect]
     Active Substance: CORTISONE ACETATE
     Route: 061
  471. CORTISONE ACETATE [Suspect]
     Active Substance: CORTISONE ACETATE
     Route: 050
  472. CORTISONE ACETATE [Suspect]
     Active Substance: CORTISONE ACETATE
     Route: 048
  473. CORTISONE ACETATE [Suspect]
     Active Substance: CORTISONE ACETATE
  474. CORTISONE ACETATE [Suspect]
     Active Substance: CORTISONE ACETATE
  475. CORTISONE ACETATE [Suspect]
     Active Substance: CORTISONE ACETATE
     Route: 048
  476. DESOXIMETASONE [Suspect]
     Active Substance: DESOXIMETASONE
     Indication: Rheumatoid arthritis
     Route: 003
  477. DESOXIMETASONE [Suspect]
     Active Substance: DESOXIMETASONE
     Route: 065
  478. DESOXIMETASONE [Suspect]
     Active Substance: DESOXIMETASONE
  479. DESOXIMETASONE [Suspect]
     Active Substance: DESOXIMETASONE
     Route: 058
  480. DESOXIMETASONE [Suspect]
     Active Substance: DESOXIMETASONE
     Route: 048
  481. DESOXIMETASONE [Suspect]
     Active Substance: DESOXIMETASONE
     Route: 061
  482. DESOXIMETASONE [Suspect]
     Active Substance: DESOXIMETASONE
     Route: 048
  483. DESOXIMETASONE [Suspect]
     Active Substance: DESOXIMETASONE
     Route: 042
  484. DESOXIMETASONE [Suspect]
     Active Substance: DESOXIMETASONE
  485. DESOXIMETASONE [Suspect]
     Active Substance: DESOXIMETASONE
     Route: 048
  486. DESOXIMETASONE [Suspect]
     Active Substance: DESOXIMETASONE
  487. DESOXIMETASONE [Suspect]
     Active Substance: DESOXIMETASONE
  488. DESOXIMETASONE [Suspect]
     Active Substance: DESOXIMETASONE
     Route: 003
  489. DESOXIMETASONE [Suspect]
     Active Substance: DESOXIMETASONE
     Route: 003
  490. DESOXIMETASONE [Suspect]
     Active Substance: DESOXIMETASONE
  491. DESOXIMETASONE [Suspect]
     Active Substance: DESOXIMETASONE
     Route: 058
  492. DESOXIMETASONE [Suspect]
     Active Substance: DESOXIMETASONE
     Route: 048
  493. DESOXIMETASONE [Suspect]
     Active Substance: DESOXIMETASONE
     Route: 058
  494. DESOXIMETASONE [Suspect]
     Active Substance: DESOXIMETASONE
     Route: 048
  495. DESOXIMETASONE [Suspect]
     Active Substance: DESOXIMETASONE
  496. DESOXIMETASONE [Suspect]
     Active Substance: DESOXIMETASONE
     Route: 058
  497. DESOXIMETASONE [Suspect]
     Active Substance: DESOXIMETASONE
     Route: 058
  498. DESOXIMETASONE [Suspect]
     Active Substance: DESOXIMETASONE
     Route: 048
  499. DESOXIMETASONE [Suspect]
     Active Substance: DESOXIMETASONE
     Route: 003
  500. DESOXIMETASONE [Suspect]
     Active Substance: DESOXIMETASONE
  501. DESOXIMETASONE [Suspect]
     Active Substance: DESOXIMETASONE
     Route: 003
  502. DESOXIMETASONE [Suspect]
     Active Substance: DESOXIMETASONE
     Route: 042
  503. DESOXIMETASONE [Suspect]
     Active Substance: DESOXIMETASONE
     Route: 048
  504. DESOXIMETASONE [Suspect]
     Active Substance: DESOXIMETASONE
     Route: 048
  505. DESOXIMETASONE [Suspect]
     Active Substance: DESOXIMETASONE
  506. DESOXIMETASONE [Suspect]
     Active Substance: DESOXIMETASONE
     Route: 048
  507. DESOXIMETASONE [Suspect]
     Active Substance: DESOXIMETASONE
     Route: 061
  508. DESOXIMETASONE [Suspect]
     Active Substance: DESOXIMETASONE
     Route: 061
  509. DESOXIMETASONE [Suspect]
     Active Substance: DESOXIMETASONE
     Route: 058
  510. DESOXIMETASONE [Suspect]
     Active Substance: DESOXIMETASONE
     Route: 003
  511. EMEND [Suspect]
     Active Substance: APREPITANT
     Indication: Product used for unknown indication
     Route: 042
  512. ENBREL [Suspect]
     Active Substance: ETANERCEPT
     Indication: Rheumatoid arthritis
     Route: 058
  513. ENBREL [Suspect]
     Active Substance: ETANERCEPT
     Indication: Psoriatic arthropathy
     Route: 058
  514. ENBREL [Suspect]
     Active Substance: ETANERCEPT
  515. ENBREL [Suspect]
     Active Substance: ETANERCEPT
     Route: 058
  516. ENBREL [Suspect]
     Active Substance: ETANERCEPT
     Route: 058
  517. ENBREL [Suspect]
     Active Substance: ETANERCEPT
     Route: 058
  518. ENBREL [Suspect]
     Active Substance: ETANERCEPT
  519. ENBREL [Suspect]
     Active Substance: ETANERCEPT
     Route: 058
  520. ENBREL [Suspect]
     Active Substance: ETANERCEPT
     Route: 058
  521. ENBREL [Suspect]
     Active Substance: ETANERCEPT
     Route: 058
  522. ENBREL [Suspect]
     Active Substance: ETANERCEPT
     Route: 058
  523. ENBREL [Suspect]
     Active Substance: ETANERCEPT
     Route: 058
  524. ENBREL [Suspect]
     Active Substance: ETANERCEPT
  525. ENBREL [Suspect]
     Active Substance: ETANERCEPT
     Route: 058
  526. ENBREL [Suspect]
     Active Substance: ETANERCEPT
     Route: 058
  527. ENBREL [Suspect]
     Active Substance: ETANERCEPT
     Route: 058
  528. ENTYVIO [Suspect]
     Active Substance: VEDOLIZUMAB
     Indication: Product used for unknown indication
  529. FLUMETHASONE PIVALATE [Suspect]
     Active Substance: FLUMETHASONE PIVALATE
     Indication: Rheumatoid arthritis
  530. FLUMETHASONE PIVALATE [Suspect]
     Active Substance: FLUMETHASONE PIVALATE
     Route: 058
  531. FOSAMAX [Suspect]
     Active Substance: ALENDRONATE SODIUM
     Indication: Rheumatoid arthritis
     Route: 048
  532. FOSAMAX [Suspect]
     Active Substance: ALENDRONATE SODIUM
     Route: 048
  533. FOSAMAX [Suspect]
     Active Substance: ALENDRONATE SODIUM
  534. FOSAMAX [Suspect]
     Active Substance: ALENDRONATE SODIUM
     Route: 048
  535. GOLIMUMAB [Suspect]
     Active Substance: GOLIMUMAB
     Indication: Rheumatoid arthritis
  536. GOLIMUMAB [Suspect]
     Active Substance: GOLIMUMAB
     Route: 058
  537. HUMIRA [Suspect]
     Active Substance: ADALIMUMAB
     Indication: Rheumatoid arthritis
  538. HUMIRA [Suspect]
     Active Substance: ADALIMUMAB
     Indication: Psoriatic arthropathy
     Route: 058
  539. HUMIRA [Suspect]
     Active Substance: ADALIMUMAB
     Route: 058
  540. HUMIRA [Suspect]
     Active Substance: ADALIMUMAB
     Route: 058
  541. HUMIRA [Suspect]
     Active Substance: ADALIMUMAB
     Route: 058
  542. HUMIRA [Suspect]
     Active Substance: ADALIMUMAB
     Route: 058
  543. HUMIRA [Suspect]
     Active Substance: ADALIMUMAB
     Route: 058
  544. HUMIRA [Suspect]
     Active Substance: ADALIMUMAB
     Route: 058
  545. HUMIRA [Suspect]
     Active Substance: ADALIMUMAB
  546. HUMIRA [Suspect]
     Active Substance: ADALIMUMAB
     Route: 057
  547. HUMIRA [Suspect]
     Active Substance: ADALIMUMAB
     Route: 058
  548. HYDROCORTISONE SODIUM SUCCINATE [Suspect]
     Active Substance: HYDROCORTISONE SODIUM SUCCINATE
     Indication: Rheumatoid arthritis
  549. HYDROCORTISONE SODIUM SUCCINATE [Suspect]
     Active Substance: HYDROCORTISONE SODIUM SUCCINATE
     Route: 048
  550. HYDROCORTISONE SODIUM SUCCINATE [Suspect]
     Active Substance: HYDROCORTISONE SODIUM SUCCINATE
  551. HYDROXYCHLOROQUINE [Suspect]
     Active Substance: HYDROXYCHLOROQUINE
     Indication: Rheumatoid arthritis
  552. HYDROXYCHLOROQUINE [Suspect]
     Active Substance: HYDROXYCHLOROQUINE
  553. HYDROXYCHLOROQUINE [Suspect]
     Active Substance: HYDROXYCHLOROQUINE
     Route: 048
  554. HYDROXYCHLOROQUINE [Suspect]
     Active Substance: HYDROXYCHLOROQUINE
     Route: 048
  555. HYDROXYCHLOROQUINE [Suspect]
     Active Substance: HYDROXYCHLOROQUINE
     Route: 058
  556. HYDROXYCHLOROQUINE [Suspect]
     Active Substance: HYDROXYCHLOROQUINE
     Route: 048
  557. HYDROXYCHLOROQUINE [Suspect]
     Active Substance: HYDROXYCHLOROQUINE
  558. HYDROXYCHLOROQUINE [Suspect]
     Active Substance: HYDROXYCHLOROQUINE
  559. HYDROXYCHLOROQUINE [Suspect]
     Active Substance: HYDROXYCHLOROQUINE
     Route: 048
  560. HYDROXYCHLOROQUINE [Suspect]
     Active Substance: HYDROXYCHLOROQUINE
  561. HYDROXYCHLOROQUINE [Suspect]
     Active Substance: HYDROXYCHLOROQUINE
  562. HYDROXYCHLOROQUINE [Suspect]
     Active Substance: HYDROXYCHLOROQUINE
  563. HYDROXYCHLOROQUINE [Suspect]
     Active Substance: HYDROXYCHLOROQUINE
     Route: 048
  564. HYDROXYCHLOROQUINE [Suspect]
     Active Substance: HYDROXYCHLOROQUINE
     Route: 048
  565. HYDROXYCHLOROQUINE [Suspect]
     Active Substance: HYDROXYCHLOROQUINE
  566. HYDROXYCHLOROQUINE [Suspect]
     Active Substance: HYDROXYCHLOROQUINE
     Route: 005
  567. HYDROXYCHLOROQUINE [Suspect]
     Active Substance: HYDROXYCHLOROQUINE
  568. PREDNISONE [Suspect]
     Active Substance: PREDNISONE
     Indication: Rheumatoid arthritis
     Route: 048
  569. PREDNISONE [Suspect]
     Active Substance: PREDNISONE
     Route: 048
  570. ISOPROPANOLAMINE [Suspect]
     Active Substance: ISOPROPANOLAMINE
     Indication: Product used for unknown indication
     Route: 061
  571. PSEUDOEPHEDRINE [Suspect]
     Active Substance: PSEUDOEPHEDRINE
     Indication: Product used for unknown indication
  572. PSEUDOEPHEDRINE [Suspect]
     Active Substance: PSEUDOEPHEDRINE
  573. OXYCODONE [Suspect]
     Active Substance: OXYCODONE
     Indication: Product used for unknown indication
     Route: 042
  574. OXYCODONE [Suspect]
     Active Substance: OXYCODONE
  575. OXYCODONE [Suspect]
     Active Substance: OXYCODONE
  576. OXYCODONE [Suspect]
     Active Substance: OXYCODONE
  577. HYDROCORTISONE [Suspect]
     Active Substance: HYDROCORTISONE
     Indication: Rheumatoid arthritis
  578. HYDROCORTISONE [Suspect]
     Active Substance: HYDROCORTISONE
     Dosage: FORMULATION: CREAM
  579. HYDROCORTISONE [Suspect]
     Active Substance: HYDROCORTISONE
     Route: 058
  580. HYDROCORTISONE [Suspect]
     Active Substance: HYDROCORTISONE
     Route: 048
  581. HYDROCORTISONE [Suspect]
     Active Substance: HYDROCORTISONE
     Route: 061
  582. HYDROCORTISONE [Suspect]
     Active Substance: HYDROCORTISONE
     Route: 048
  583. HYDROCORTISONE [Suspect]
     Active Substance: HYDROCORTISONE
     Route: 003
  584. HYDROCORTISONE [Suspect]
     Active Substance: HYDROCORTISONE
     Route: 058
  585. ALENDRONIC ACID [Suspect]
     Active Substance: ALENDRONIC ACID
     Indication: Rheumatoid arthritis
     Route: 048
  586. ALENDRONIC ACID [Suspect]
     Active Substance: ALENDRONIC ACID
     Route: 048
  587. ALENDRONIC ACID [Suspect]
     Active Substance: ALENDRONIC ACID
  588. ALENDRONIC ACID [Suspect]
     Active Substance: ALENDRONIC ACID
  589. ALENDRONIC ACID [Suspect]
     Active Substance: ALENDRONIC ACID
     Route: 016
  590. ALENDRONIC ACID [Suspect]
     Active Substance: ALENDRONIC ACID
     Route: 048
  591. ADALIMUMAB [Suspect]
     Active Substance: ADALIMUMAB
     Indication: Psoriatic arthropathy
     Route: 048
  592. ADALIMUMAB [Suspect]
     Active Substance: ADALIMUMAB
     Indication: Rheumatoid arthritis
     Route: 058
  593. ADALIMUMAB [Suspect]
     Active Substance: ADALIMUMAB
     Route: 042
  594. ADALIMUMAB [Suspect]
     Active Substance: ADALIMUMAB
     Route: 058
  595. ADALIMUMAB [Suspect]
     Active Substance: ADALIMUMAB
     Route: 058
  596. DOXYCYCLINE [Suspect]
     Active Substance: DOXYCYCLINE
     Indication: Product used for unknown indication
  597. VITAMINS [Suspect]
     Active Substance: VITAMINS
     Indication: Product used for unknown indication
  598. OXYCODONE HYDROCHLORIDE [Suspect]
     Active Substance: OXYCODONE HYDROCHLORIDE
     Indication: Product used for unknown indication
  599. OXYCODONE HYDROCHLORIDE [Suspect]
     Active Substance: OXYCODONE HYDROCHLORIDE
  600. PANTOPRAZOLE SODIUM ANHYDROUS [Suspect]
     Active Substance: PANTOPRAZOLE SODIUM ANHYDROUS
     Indication: Product used for unknown indication
     Route: 016
  601. PANTOPRAZOLE SODIUM ANHYDROUS [Suspect]
     Active Substance: PANTOPRAZOLE SODIUM ANHYDROUS
  602. PREDNISOLONE [Suspect]
     Active Substance: PREDNISOLONE
     Indication: Product used for unknown indication
     Route: 048
  603. PANADOL [Suspect]
     Active Substance: ACETAMINOPHEN
     Indication: Rheumatoid arthritis
  604. PANADOL [Suspect]
     Active Substance: ACETAMINOPHEN
     Indication: Pyrexia
  605. PANADOL [Suspect]
     Active Substance: ACETAMINOPHEN
     Indication: Pain
  606. CALCIUM GLUBIONATE [Suspect]
     Active Substance: CALCIUM GLUBIONATE
     Indication: Product used for unknown indication
  607. CALCIUM GLUBIONATE [Suspect]
     Active Substance: CALCIUM GLUBIONATE
     Route: 016
  608. SARILUMAB [Suspect]
     Active Substance: SARILUMAB
     Indication: Product used for unknown indication
  609. ACETAMINOPHEN AND CODEINE [Suspect]
     Active Substance: ACETAMINOPHEN\CODEINE PHOSPHATE
     Indication: Product used for unknown indication

REACTIONS (19)
  - Systemic lupus erythematosus [Fatal]
  - Rash [Fatal]
  - Weight increased [Fatal]
  - Sinusitis [Fatal]
  - Synovitis [Fatal]
  - Musculoskeletal stiffness [Fatal]
  - Drug intolerance [Fatal]
  - Joint swelling [Fatal]
  - Rheumatoid arthritis [Fatal]
  - Impaired healing [Fatal]
  - Hepatic enzyme increased [Fatal]
  - Wound [Fatal]
  - Stomatitis [Fatal]
  - Swelling [Fatal]
  - Alopecia [Fatal]
  - Sleep disorder due to general medical condition, insomnia type [Fatal]
  - Blister [Fatal]
  - Pruritus [Fatal]
  - Hypersensitivity [Fatal]
